FAERS Safety Report 9436920 (Version 3)
Quarter: 2014Q1

REPORT INFORMATION
  Report Type: Spontaneous
  Country: US (occurrence: US)
  Receive Date: 20130802
  Receipt Date: 20140204
  Transmission Date: 20141002
  Serious: No
  Sender: FDA-Public Use
  Company Number: US-PFIZER INC-2013224206

PATIENT
  Age: 50 Year
  Sex: Female

DRUGS (18)
  1. LYRICA [Suspect]
     Dosage: 75 MG, 2X/DAY
     Route: 048
  2. LYRICA [Suspect]
     Dosage: 150 MG, 2X/DAY
     Route: 048
     Dates: start: 20131212
  3. XANAX [Suspect]
     Dosage: UNK
  4. PLAVIX [Concomitant]
     Dosage: 75 MG, 1X/DAY
     Route: 048
  5. TENORMIN [Concomitant]
     Dosage: 25 MG, 1X/DAY
     Route: 048
  6. ZANAFLEX [Concomitant]
     Dosage: 4 MG, AS NEEDED (EVERY 8 HOURS)
     Route: 048
  7. NAPROSYN [Concomitant]
     Dosage: 500 MG, 2X/DAY
     Route: 048
  8. CARAFATE [Concomitant]
     Dosage: 1 G, 1X/DAY
     Route: 048
  9. PREVACID [Concomitant]
     Dosage: 30 MG, 1X/DAY (BEFORE BREAKFAST)
     Route: 048
  10. ZESTRIL [Concomitant]
     Dosage: 20 MG, 1X/DAY
     Route: 048
  11. PRINIVIL [Concomitant]
     Dosage: 20 MG, 1X/DAY
     Route: 048
  12. NOVOLOG [Concomitant]
     Dosage: 10 IU, 3X/DAY (BEFORE MEALS)
     Route: 058
  13. INSULIN DETEMIR [Concomitant]
     Dosage: 40 IU, (BED TIME)
     Route: 058
  14. ULTRAM [Concomitant]
     Indication: PAIN
     Dosage: 50 MG, AS NEEDED (EVERY 6 HOURS)
     Route: 048
     Dates: start: 20130424
  15. NITROSTAT [Concomitant]
     Indication: ANGINA PECTORIS
     Dosage: 0.4 MG, AS NEEDED (EVERY 5 MINUTES)
     Route: 060
     Dates: start: 20120919
  16. TRAZODONE HYDROCHLORIDE [Concomitant]
     Dosage: UNK
     Route: 048
  17. LOFIBRA [Concomitant]
     Dosage: 160 MG, UNK
  18. LEVEMIR [Concomitant]
     Dosage: UNK

REACTIONS (1)
  - Pain in extremity [Unknown]
